FAERS Safety Report 6692766-5 (Version None)
Quarter: 2010Q2

REPORT INFORMATION
  Report Type: 
  Country: None (occurrence: None)
  Receive Date: 20100419
  Receipt Date: 20100406
  Transmission Date: 20101027
  Serious: Yes (Other)
  Sender: FDA-Public Use
  Company Number: 2010AL002013

PATIENT
  Age: 36 Year
  Sex: Female

DRUGS (4)
  1. BUPROPION HCL [Suspect]
     Indication: DEPRESSION
     Dosage: 300 MG;QD;
  2. CLONAZEPAM [Suspect]
     Indication: DEPRESSION
  3. LITHIUM CARBONATE [Concomitant]
  4. QUETIAPINE [Concomitant]

REACTIONS (12)
  - AGGRESSION [None]
  - ANHEDONIA [None]
  - DECREASED APPETITE [None]
  - DEPRESSION [None]
  - FATIGUE [None]
  - FEAR [None]
  - HALLUCINATION [None]
  - INDIFFERENCE [None]
  - PERSECUTORY DELUSION [None]
  - PSYCHOTIC DISORDER [None]
  - SCHIZOPHRENIA, PARANOID TYPE [None]
  - SLEEP DISORDER [None]
